FAERS Safety Report 17406577 (Version 1)
Quarter: 2020Q1

REPORT INFORMATION
  Report Type: Spontaneous
  Country: US (occurrence: US)
  Receive Date: 20200211
  Receipt Date: 20200211
  Transmission Date: 20200409
  Serious: Yes (Disabling, Other)
  Sender: FDA-Public Use
  Company Number: None

PATIENT
  Age: 60 Year
  Sex: Male
  Weight: 96.3 kg

DRUGS (6)
  1. REPATHA [Suspect]
     Active Substance: EVOLOCUMAB
     Indication: BLOOD CHOLESTEROL INCREASED
     Dosage: ?          OTHER FREQUENCY:EVERY 15 DAYS;OTHER ROUTE:INJECTION IN STOMACH MUSCLE AREA?
  2. ASPRIN [Concomitant]
     Active Substance: ASPIRIN
  3. PROGRAF [Concomitant]
     Active Substance: TACROLIMUS
  4. CELCEPT [Concomitant]
  5. PREDISONE [Concomitant]
     Active Substance: PREDNISONE
  6. AMALODEPINE [Concomitant]

REACTIONS (9)
  - Renal transplant [None]
  - Pain in extremity [None]
  - Arthralgia [None]
  - Arthritis [None]
  - Weight increased [None]
  - Atrioventricular block [None]
  - Back pain [None]
  - Gout [None]
  - Joint lock [None]
